FAERS Safety Report 8227169-5 (Version None)
Quarter: 2012Q1

REPORT INFORMATION
  Report Type: 
  Country: None (occurrence: None)
  Receive Date: 20120322
  Receipt Date: 20120316
  Transmission Date: 20120608
  Serious: Yes (Hospitalization)
  Sender: FDA-Public Use
  Company Number: US-BAYER-2012-016512

PATIENT
  Age: 69 Year
  Sex: Female

DRUGS (2)
  1. SORAFENIB (RAF KINASE INHIBITOR) [Suspect]
     Dosage: 200 MG, QD
     Dates: start: 20120202
  2. SORAFENIB (RAF KINASE INHIBITOR) [Suspect]
     Indication: RENAL CELL CARCINOMA
     Dosage: 200 MG, QD
     Dates: start: 20120120, end: 20120129

REACTIONS (6)
  - DIARRHOEA [None]
  - CEREBROVASCULAR ACCIDENT [None]
  - CONFUSIONAL STATE [None]
  - CONVULSION [None]
  - LOSS OF CONSCIOUSNESS [None]
  - HYPERTENSION [None]
